FAERS Safety Report 18573613 (Version 1)
Quarter: 2020Q4

REPORT INFORMATION
  Report Type: Report from Study
  Country: FR (occurrence: FR)
  Receive Date: 20201203
  Receipt Date: 20201203
  Transmission Date: 20210114
  Serious: Yes (Hospitalization, Other)
  Sender: FDA-Public Use
  Company Number: NVSC2020FR286295

PATIENT
  Sex: Female
  Weight: 91 kg

DRUGS (5)
  1. REVOLADE [Suspect]
     Active Substance: ELTROMBOPAG
     Indication: IMMUNE THROMBOCYTOPENIA
     Dosage: 14.3 MG, QD
     Route: 048
  2. REVOLADE [Suspect]
     Active Substance: ELTROMBOPAG
     Dosage: 50 MG, QD
     Route: 048
     Dates: start: 20190125, end: 20190208
  3. REVOLADE [Suspect]
     Active Substance: ELTROMBOPAG
     Dosage: 4 DOSES OF 25 MG, WEEKLY
     Route: 048
     Dates: start: 20190410, end: 20200123
  4. REVOLADE [Suspect]
     Active Substance: ELTROMBOPAG
     Dosage: 25 MG, QD
     Route: 048
     Dates: start: 20190208, end: 20190410
  5. REVOLADE [Suspect]
     Active Substance: ELTROMBOPAG
     Dosage: 3 DOSES OF 25 MG, WEEKLY
     Route: 048
     Dates: start: 20200123

REACTIONS (4)
  - Abdominal pain [Unknown]
  - Pyelonephritis [Recovered/Resolved]
  - Incorrect dose administered [Unknown]
  - Back pain [Unknown]

NARRATIVE: CASE EVENT DATE: 20200714
